FAERS Safety Report 5921607-6 (Version None)
Quarter: 2008Q4

REPORT INFORMATION
  Report Type: 
  Country: None (occurrence: None)
  Receive Date: 20081016
  Receipt Date: 20081016
  Transmission Date: 20090506
  Serious: No
  Sender: FDA-Public Use
  Company Number: None

PATIENT
  Sex: Female

DRUGS (1)
  1. SYNTHROID [Suspect]
     Dosage: 300MCG 1 EVERYDAY BY MOUTH
     Route: 048

REACTIONS (1)
  - PRODUCT QUALITY ISSUE [None]
